FAERS Safety Report 8612922-6 (Version None)
Quarter: 2012Q3

REPORT INFORMATION
  Report Type: 
  Country: None (occurrence: None)
  Receive Date: 20120822
  Receipt Date: 20120416
  Transmission Date: 20120928
  Serious: No
  Sender: FDA-Public Use
  Company Number: US-ALLERGAN-1205414US

PATIENT
  Sex: Female

DRUGS (2)
  1. SANCTURA XR [Suspect]
     Indication: HYPERTONIC BLADDER
     Dosage: 1 UNK, QD
     Route: 048
     Dates: start: 20120402
  2. SYNTHROID [Concomitant]
     Indication: HYPOTHYROIDISM
     Dosage: 60 MG, QD
     Route: 048

REACTIONS (2)
  - DYSPEPSIA [None]
  - ERUCTATION [None]
